FAERS Safety Report 25382048 (Version 3)
Quarter: 2025Q2

REPORT INFORMATION
  Report Type: Report from Study
  Country: KR (occurrence: KR)
  Receive Date: 20250531
  Receipt Date: 20250618
  Transmission Date: 20250717
  Serious: Yes (Hospitalization)
  Sender: CELLTRION
  Company Number: KR-CELLTRION INC.-2024KR011536

PATIENT

DRUGS (40)
  1. BEVACIZUMAB-ADCD [Suspect]
     Active Substance: BEVACIZUMAB-ADCD
     Indication: Colorectal cancer metastatic
     Dosage: 57.6 KG 288 MG, Q2WEEKS
     Route: 042
     Dates: start: 20231104
  2. BEVACIZUMAB-ADCD [Suspect]
     Active Substance: BEVACIZUMAB-ADCD
     Dosage: 288 MG, Q2WEEKS
     Route: 042
     Dates: start: 20231104, end: 20240227
  3. BEVACIZUMAB-ADCD [Suspect]
     Active Substance: BEVACIZUMAB-ADCD
     Dosage: 58KG 290MG, Q2WEEKS
     Route: 042
     Dates: start: 20231121, end: 20240227
  4. BEVACIZUMAB-ADCD [Suspect]
     Active Substance: BEVACIZUMAB-ADCD
     Dosage: 61.2 KG 306MG, Q2WEEKS
     Route: 042
     Dates: start: 20240227, end: 20240227
  5. IRINOTECAN [Suspect]
     Active Substance: IRINOTECAN
     Indication: Colorectal cancer metastatic
     Dates: start: 20231104, end: 20240227
  6. FLUOROURACIL [Suspect]
     Active Substance: FLUOROURACIL
     Indication: Colorectal cancer metastatic
     Dates: start: 20231104, end: 20240228
  7. LEUCOVORIN CALCIUM [Concomitant]
     Active Substance: LEUCOVORIN CALCIUM
     Indication: Colorectal cancer metastatic
     Route: 042
     Dates: start: 20231104, end: 20240227
  8. LEUCOVORIN CALCIUM [Concomitant]
     Active Substance: LEUCOVORIN CALCIUM
     Indication: Chemotherapy side effect prophylaxis
  9. YUHAN DEXAMETHASONE DISODIUM PHOSPHATE [Concomitant]
     Indication: Prophylaxis of nausea and vomiting
     Route: 042
     Dates: start: 20231104, end: 20240227
  10. ALOCTRON [Concomitant]
     Indication: Prophylaxis of nausea and vomiting
     Route: 042
     Dates: start: 20231104, end: 20240227
  11. CREON 40000 [Concomitant]
     Indication: Post procedural complication
     Route: 048
     Dates: start: 20230822, end: 20240310
  12. CREON 40000 [Concomitant]
     Indication: Prophylaxis
  13. HERBALS [Concomitant]
     Active Substance: HERBALS
     Indication: Post procedural complication
     Route: 048
     Dates: start: 20230822, end: 20240310
  14. HERBALS [Concomitant]
     Active Substance: HERBALS
     Indication: Prophylaxis
  15. FOICHOL [Concomitant]
     Indication: Post procedural complication
     Route: 048
     Dates: start: 20230822, end: 20240310
  16. FOICHOL [Concomitant]
     Indication: Prophylaxis
  17. DEXILANT [Concomitant]
     Active Substance: DEXLANSOPRAZOLE
     Indication: Prophylaxis against gastrointestinal ulcer
     Route: 048
     Dates: start: 20230822, end: 20231123
  18. LIVACT [AMINO ACIDS NOS] [Concomitant]
     Indication: Post procedural complication
     Route: 048
     Dates: start: 2023, end: 20231204
  19. LIVACT [AMINO ACIDS NOS] [Concomitant]
     Indication: Prophylaxis
  20. ARGININ [ARGININE HYDROCHLORIDE] [Concomitant]
     Indication: Post procedural complication
     Route: 048
     Dates: start: 2023, end: 20231203
  21. ARGININ [ARGININE HYDROCHLORIDE] [Concomitant]
     Indication: Prophylaxis
  22. DAEWON MEGESTROL ES [Concomitant]
     Indication: Decreased appetite
     Route: 048
     Dates: start: 20230919
  23. DAEWON MEGESTROL ES [Concomitant]
     Indication: Prophylaxis
  24. FEDULOW [Concomitant]
     Indication: Blood iron increased
     Route: 048
     Dates: start: 20231121
  25. FEDULOW [Concomitant]
     Indication: Prophylaxis
  26. CEFTRIAXONE SODIUM [Concomitant]
     Active Substance: CEFTRIAXONE SODIUM
     Indication: Arthritis fungal
     Route: 042
     Dates: start: 20231205, end: 20231208
  27. RIFAMPIN [Concomitant]
     Active Substance: RIFAMPIN
     Indication: Arthritis fungal
     Route: 048
     Dates: start: 20231207, end: 20231207
  28. PIPERACILLIN SODIUM\TAZOBACTAM SODIUM [Concomitant]
     Active Substance: PIPERACILLIN SODIUM\TAZOBACTAM SODIUM
     Indication: Arthritis fungal
     Route: 042
     Dates: start: 20231209, end: 20231211
  29. PANTOPRAZOLE SODIUM [Concomitant]
     Active Substance: PANTOPRAZOLE SODIUM
     Indication: Prophylaxis against gastrointestinal ulcer
     Route: 042
     Dates: start: 20231211
  30. VFEND [Concomitant]
     Active Substance: VORICONAZOLE
     Indication: Arthritis fungal
     Route: 042
     Dates: start: 20231212
  31. DIFLUCAN [Concomitant]
     Active Substance: FLUCONAZOLE
     Indication: Arthritis fungal
     Route: 042
     Dates: start: 20231208, end: 20240326
  32. MAXIPIME [Concomitant]
     Active Substance: CEFEPIME HYDROCHLORIDE
     Indication: Arthritis fungal
     Route: 042
     Dates: start: 20231212, end: 20231217
  33. SYNERJET [Concomitant]
     Indication: Arthritis fungal
     Route: 048
     Dates: start: 20231211
  34. JEIL ATROPINE SULFATE [Concomitant]
     Indication: Prophylaxis
     Route: 048
     Dates: start: 20231104, end: 20240227
  35. VANCO KIT [Concomitant]
     Indication: Arthritis fungal
     Route: 042
     Dates: start: 20240319
  36. SODIUM CHLORIDE [Concomitant]
     Active Substance: SODIUM CHLORIDE
     Indication: Acute kidney injury
     Route: 042
     Dates: start: 20240310, end: 20240327
  37. FULLGRAM [CLINDAMYCIN HYDROCHLORIDE] [Concomitant]
     Indication: Arthritis fungal
     Route: 042
     Dates: start: 20231205, end: 20231208
  38. FULLGRAM [CLINDAMYCIN HYDROCHLORIDE] [Concomitant]
     Route: 042
     Dates: start: 20231212, end: 20231217
  39. NEXIUM I.V. [Concomitant]
     Active Substance: ESOMEPRAZOLE SODIUM
     Indication: Duodenal ulcer
     Route: 042
     Dates: start: 20210317
  40. LEUCOSODIUM [Concomitant]
     Indication: Prophylaxis
     Route: 042
     Dates: start: 20220511

REACTIONS (1)
  - Acute kidney injury [Recovered/Resolved]

NARRATIVE: CASE EVENT DATE: 20240310
